FAERS Safety Report 15812321 (Version 2)
Quarter: 2019Q1

REPORT INFORMATION
  Report Type: Report from Study
  Country: BE (occurrence: BE)
  Receive Date: 20190111
  Receipt Date: 20190125
  Transmission Date: 20190417
  Serious: Yes (Other)
  Sender: FDA-Public Use
  Company Number: PHHY2015BE158447

PATIENT
  Age: 52 Year
  Sex: Female

DRUGS (1)
  1. GILENYA [Suspect]
     Active Substance: FINGOLIMOD HYDROCHLORIDE
     Indication: MULTIPLE SCLEROSIS
     Dosage: UNK UNK, QD
     Route: 048
     Dates: start: 20130618

REACTIONS (12)
  - Lymphocyte percentage increased [Unknown]
  - Arthralgia [Unknown]
  - Obesity [Recovered/Resolved]
  - Tendonitis [Unknown]
  - Alanine aminotransferase increased [Unknown]
  - Gamma-glutamyltransferase increased [Unknown]
  - Blood cholesterol abnormal [Unknown]
  - Urge incontinence [Unknown]
  - Low density lipoprotein abnormal [Unknown]
  - Blood alkaline phosphatase abnormal [Unknown]
  - High density lipoprotein abnormal [Unknown]
  - Lymphocyte count decreased [Unknown]

NARRATIVE: CASE EVENT DATE: 20141127
